FAERS Safety Report 5312375-X (Version None)
Quarter: 2007Q2

REPORT INFORMATION
  Report Type: 
  Country: None (occurrence: None)
  Receive Date: 20070430
  Receipt Date: 20070420
  Transmission Date: 20071010
  Serious: Yes (Other)
  Sender: FDA-Public Use
  Company Number: US-GENENTECH-240339

PATIENT
  Sex: Male

DRUGS (10)
  1. BEVACIZUMAB [Suspect]
     Indication: HEPATIC NEOPLASM MALIGNANT
     Dosage: 830 MG, UNK
     Route: 042
     Dates: start: 20070209
  2. BEVACIZUMAB [Suspect]
     Dosage: 785 MG, UNK
     Route: 042
  3. MORPHINE [Concomitant]
     Indication: DRUG USE FOR UNKNOWN INDICATION
  4. ATENOL [Concomitant]
     Indication: DRUG USE FOR UNKNOWN INDICATION
     Dosage: 25 MG, QD
     Route: 048
  5. FOSINOPRIL SODIUM [Concomitant]
     Indication: DRUG USE FOR UNKNOWN INDICATION
     Dosage: 40 MG, QD
     Route: 048
  6. CISPLATIN [Concomitant]
     Indication: THERAPEUTIC EMBOLISATION
     Dosage: 100 MG, UNK
     Dates: start: 20070216
  7. DOXORUBICIN HCL [Concomitant]
     Indication: THERAPEUTIC EMBOLISATION
     Dosage: 50 MG, UNK
     Dates: start: 20070216
  8. MITOMYCINE C [Concomitant]
     Indication: THERAPEUTIC EMBOLISATION
     Dosage: 10 MG, UNK
  9. ETHIODOL [Concomitant]
     Indication: THERAPEUTIC EMBOLISATION
     Dosage: 10 ML, UNK
  10. LIDOCAINE [Concomitant]
     Indication: THERAPEUTIC EMBOLISATION
     Dosage: 18 ML, UNK

REACTIONS (1)
  - ARTERY DISSECTION [None]
